FAERS Safety Report 9105773 (Version 1)
Quarter: 2013Q1

REPORT INFORMATION
  Report Type: Spontaneous
  Country: BR (occurrence: BR)
  Receive Date: 20130220
  Receipt Date: 20130220
  Transmission Date: 20140127
  Serious: Yes (Other)
  Sender: FDA-Public Use
  Company Number: PHHY2012BR083257

PATIENT
  Sex: Male
  Weight: 90 kg

DRUGS (2)
  1. FORASEQ [Suspect]
     Indication: BRONCHITIS
     Dosage: 3 DF, DAILY
  2. FORASEQ [Suspect]
     Dosage: 1 DF, BID

REACTIONS (3)
  - Asphyxia [Recovered/Resolved]
  - Chest pain [Recovered/Resolved]
  - Back pain [Recovered/Resolved]
